FAERS Safety Report 26119090 (Version 1)
Quarter: 2025Q4

REPORT INFORMATION
  Report Type: Spontaneous
  Country: AU (occurrence: AU)
  Receive Date: 20251204
  Receipt Date: 20251204
  Transmission Date: 20260118
  Serious: Yes (Other)
  Sender: MACLEODS
  Company Number: AU-MLMSERVICE-20251117-PI715366-00202-1

PATIENT

DRUGS (7)
  1. LINEZOLID [Suspect]
     Active Substance: LINEZOLID
     Indication: Endocarditis
     Route: 065
  2. LINEZOLID [Suspect]
     Active Substance: LINEZOLID
     Indication: Mycobacterium fortuitum infection
  3. LINEZOLID [Suspect]
     Active Substance: LINEZOLID
  4. IMIPENEM [Concomitant]
     Active Substance: IMIPENEM
     Route: 065
  5. IMIPENEM [Concomitant]
     Active Substance: IMIPENEM
  6. DOXYCYCLINE [Concomitant]
     Active Substance: DOXYCYCLINE
     Route: 065
  7. DOXYCYCLINE [Concomitant]
     Active Substance: DOXYCYCLINE

REACTIONS (1)
  - Cytopenia [Unknown]
